FAERS Safety Report 20350275 (Version 5)
Quarter: 2024Q2

REPORT INFORMATION
  Report Type: Report from Study
  Country: CA (occurrence: CA)
  Receive Date: 20220119
  Receipt Date: 20240626
  Transmission Date: 20240715
  Serious: Yes (Hospitalization)
  Sender: FDA-Public Use
  Company Number: CA-ROCHE-3003862

PATIENT
  Age: 48 Year
  Sex: Male
  Weight: 64.5 kg

DRUGS (1)
  1. OCREVUS [Suspect]
     Active Substance: OCRELIZUMAB
     Indication: Relapsing-remitting multiple sclerosis
     Dosage: 300 MG AT DAY 0 AND 14, THEN 600 MG EVERY 6 MONTH
     Route: 042
     Dates: start: 20200731

REACTIONS (5)
  - COVID-19 [Recovered/Resolved]
  - Respiratory syncytial virus infection [Unknown]
  - Pneumonia [Recovered/Resolved]
  - Visual impairment [Not Recovered/Not Resolved]
  - Facial spasm [Recovered/Resolved]

NARRATIVE: CASE EVENT DATE: 20220113
